FAERS Safety Report 24757603 (Version 1)
Quarter: 2024Q4

REPORT INFORMATION
  Report Type: Spontaneous
  Country: CZ (occurrence: CZ)
  Receive Date: 20241220
  Receipt Date: 20241220
  Transmission Date: 20250115
  Serious: Yes (Hospitalization)
  Sender: AUROBINDO
  Company Number: CZ-EGIS-HUN-2024-1439

PATIENT
  Age: 60 Year
  Sex: Male

DRUGS (7)
  1. METOPROLOL [Interacting]
     Active Substance: METOPROLOL
     Indication: Product used for unknown indication
     Dosage: UNK
     Route: 065
  2. AMLODIPINE\INDAPAMIDE\PERINDOPRIL [Interacting]
     Active Substance: AMLODIPINE\INDAPAMIDE\PERINDOPRIL
     Indication: Product used for unknown indication
     Dosage: UNK
     Route: 065
  3. CHLORPROTHIXENE [Interacting]
     Active Substance: CHLORPROTHIXENE
     Indication: Anxiety
     Dosage: 15 MILLIGRAM, 3 TIMES A DAY (IN CASE OF ANXIET)
     Route: 065
  4. DOSULEPIN HYDROCHLORIDE [Interacting]
     Active Substance: DOTHIEPIN HYDROCHLORIDE
     Indication: Product used for unknown indication
     Dosage: 25 MILLIGRAM, TWO TIMES A DAY
     Route: 065
  5. LEVOMEPROMAZINE [Suspect]
     Active Substance: LEVOMEPROMAZINE
     Indication: Product used for unknown indication
     Dosage: 25 MILLIGRAM, ONCE A DAY (0-0-2)
     Route: 065
  6. TRAZODONE [Interacting]
     Active Substance: TRAZODONE HYDROCHLORIDE
     Indication: Product used for unknown indication
     Dosage: 50 MILLIGRAM, AT BED TIME
     Route: 065
  7. MIRTAZAPINE [Concomitant]
     Active Substance: MIRTAZAPINE
     Indication: Product used for unknown indication
     Dosage: 15 MILLIGRAM, AT BED TIME
     Route: 065

REACTIONS (2)
  - Orthostatic hypotension [Unknown]
  - Labelled drug-drug interaction issue [Unknown]
